FAERS Safety Report 5556980-4 (Version None)
Quarter: 2007Q4

REPORT INFORMATION
  Report Type: 
  Country: None (occurrence: None)
  Receive Date: 20071214
  Receipt Date: 20070921
  Transmission Date: 20080405
  Serious: No
  Sender: FDA-Public Use
  Company Number: US-AMGEN-KDL244553

PATIENT
  Sex: Male

DRUGS (2)
  1. ENBREL [Suspect]
     Indication: PSORIATIC ARTHROPATHY
     Route: 058
     Dates: start: 20070401
  2. ENBREL [Suspect]
     Indication: PSORIASIS

REACTIONS (5)
  - DRUG INEFFECTIVE [None]
  - ROTATOR CUFF SYNDROME [None]
  - SKIN FRAGILITY [None]
  - SUNBURN [None]
  - TENDON INJURY [None]
